FAERS Safety Report 4629461-X (Version None)
Quarter: 2005Q2

REPORT INFORMATION
  Report Type: 
  Country: None (occurrence: None)
  Receive Date: 20050405
  Receipt Date: 20040908
  Transmission Date: 20051028
  Serious: Yes (Death, Hospitalization)
  Sender: FDA-Public Use
  Company Number: 208883

PATIENT
  Sex: Female

DRUGS (5)
  1. MABTHERA              (RITUXIMAB) [Suspect]
     Indication: NON-HODGKIN'S LYMPHOMA
     Dosage: 600 MG, 1/WEEK, INTRAVENOUS
     Route: 042
     Dates: start: 20040301
  2. CYCLOPHOSPHAMIDE [Concomitant]
     Route: 042
  3. DOXORUBICIN HCL [Concomitant]
     Route: 042
  4. VINCRISTINE [Concomitant]
     Route: 042
  5. PREDNISONE [Concomitant]
     Route: 042

REACTIONS (9)
  - ABSCESS [None]
  - CELLULITIS [None]
  - DISEASE PROGRESSION [None]
  - METASTASES TO GASTROINTESTINAL TRACT [None]
  - METASTASES TO OVARY [None]
  - NOSOCOMIAL INFECTION [None]
  - OEDEMA [None]
  - PNEUMONIA [None]
  - RESPIRATORY FAILURE [None]
